FAERS Safety Report 19513169 (Version 1)
Quarter: 2021Q3

REPORT INFORMATION
  Report Type: Spontaneous
  Country: CN (occurrence: CN)
  Receive Date: 20210709
  Receipt Date: 20210709
  Transmission Date: 20211014
  Serious: Yes (Other)
  Sender: FDA-Public Use
  Company Number: CN-PFIZER INC-2021800194

PATIENT
  Age: 52 Year
  Sex: Female
  Weight: 64 kg

DRUGS (4)
  1. TIGECYCLINE. [Suspect]
     Active Substance: TIGECYCLINE
     Indication: SEPSIS
     Dosage: 200 MG (FIRST DOSE)
     Route: 041
     Dates: start: 20180227
  2. TIGECYCLINE. [Suspect]
     Active Substance: TIGECYCLINE
     Indication: STAPHYLOCOCCAL INFECTION
     Dosage: 100 MG, Q12H
     Route: 041
     Dates: end: 20180303
  3. MOXIFLOXACIN. [Concomitant]
     Active Substance: MOXIFLOXACIN
     Indication: STAPHYLOCOCCAL INFECTION
  4. MOXIFLOXACIN. [Concomitant]
     Active Substance: MOXIFLOXACIN
     Indication: SEPSIS
     Dosage: 0.5 G, QD
     Route: 041

REACTIONS (3)
  - Hypofibrinogenaemia [Recovered/Resolved]
  - Prescribed overdose [Unknown]
  - Coagulopathy [Recovering/Resolving]

NARRATIVE: CASE EVENT DATE: 20180227
